FAERS Safety Report 9850015 (Version 1)
Quarter: 2014Q1

REPORT INFORMATION
  Report Type: Spontaneous
  Country: US (occurrence: None)
  Receive Date: 20140124
  Receipt Date: 20140124
  Transmission Date: 20141002
  Serious: No
  Sender: FDA-Public Use
  Company Number: 14AE005

PATIENT
  Age: 43 Year
  Sex: Female
  Weight: 77.11 kg

DRUGS (1)
  1. EQUATE DOXYLAMINE SUCCINATE 25MG TABLETS [Suspect]
     Indication: SLEEP DISORDER
     Dosage: 2 (1 PER NIGHT)
     Dates: start: 20140107, end: 20140109

REACTIONS (4)
  - Headache [None]
  - Sinus headache [None]
  - Initial insomnia [None]
  - Middle insomnia [None]
